FAERS Safety Report 6489761-8 (Version None)
Quarter: 2009Q4

REPORT INFORMATION
  Report Type: 
  Country: None (occurrence: None)
  Receive Date: 20091207
  Receipt Date: 20091123
  Transmission Date: 20100525
  Serious: Yes (Hospitalization, Other)
  Sender: FDA-Public Use
  Company Number: 2009AC000109

PATIENT
  Age: 71 Year
  Sex: Female

DRUGS (11)
  1. DIGOXIN [Suspect]
     Dosage: PO
     Route: 048
     Dates: end: 20071121
  2. AMIODARONE HCL [Suspect]
  3. PEPCID [Concomitant]
  4. PROTONIX [Concomitant]
  5. CARAFATE [Concomitant]
  6. ZITHROMAX [Concomitant]
  7. LEVAQUIN [Concomitant]
  8. LIPITOR [Concomitant]
  9. SYNTHROID [Concomitant]
  10. TRIAMTERENE [Concomitant]
  11. EXCEDRIN (MIGRAINE) [Concomitant]

REACTIONS (24)
  - ACCIDENT [None]
  - ARTHRITIS [None]
  - ASTHMA [None]
  - ATRIAL FIBRILLATION [None]
  - BLINDNESS [None]
  - BRADYCARDIA [None]
  - BRONCHITIS [None]
  - CONDITION AGGRAVATED [None]
  - DEFORMITY [None]
  - DIZZINESS [None]
  - ECONOMIC PROBLEM [None]
  - EYELID OEDEMA [None]
  - HEADACHE [None]
  - HYPERLIPIDAEMIA [None]
  - HYPERTENSION [None]
  - MALIGNANT MYOPIA [None]
  - MULTIPLE INJURIES [None]
  - PAIN [None]
  - PNEUMONIA [None]
  - REFLUX OESOPHAGITIS [None]
  - SUBDURAL HAEMATOMA [None]
  - SURGERY [None]
  - THERAPEUTIC AGENT TOXICITY [None]
  - VITREOUS DETACHMENT [None]
